FAERS Safety Report 8962572 (Version 1)
Quarter: 2012Q4

REPORT INFORMATION
  Report Type: 
  Country: DK (occurrence: FR)
  Receive Date: 20121214
  Receipt Date: 20121214
  Transmission Date: 20130627
  Serious: Yes (Hospitalization)
  Sender: FDA-Public Use
  Company Number: FR-FRI-1000024924

PATIENT
  Sex: Female

DRUGS (10)
  1. MEMANTINE [Suspect]
     Indication: DEMENTIA ALZHEIMER^S TYPE
     Dates: end: 20110722
  2. DEPAMIDE [Suspect]
     Dates: end: 20110722
  3. CACIT D3 [Suspect]
     Indication: CALCIUM DEFICIENCY
     Route: 048
     Dates: end: 20110722
  4. COUMADINE [Suspect]
     Indication: THROMBOSIS PROPHYLAXIS
     Route: 048
     Dates: start: 20110602
  5. DIOSMINE [Suspect]
     Indication: SENSATION OF HEAVINESS
     Route: 048
     Dates: end: 20110722
  6. REMINYL [Suspect]
     Indication: DEMENTIA ALZHEIMER^S TYPE
     Route: 048
     Dates: end: 20110722
  7. RIVOTRIL [Suspect]
     Indication: EPILEPSY
     Route: 048
  8. TANAKAN [Suspect]
     Indication: DEMENTIA ALZHEIMER^S TYPE
     Route: 048
     Dates: end: 20110722
  9. UVEDOSE [Suspect]
     Indication: VITAMIN D DEFICIENCY
     Route: 048
     Dates: end: 20110722
  10. ESCITALOPRAM [Concomitant]
     Indication: ANXIETY
     Route: 048
     Dates: start: 20110602, end: 20110715

REACTIONS (1)
  - No adverse event [Recovered/Resolved]
